FAERS Safety Report 5322219-8 (Version None)
Quarter: 2007Q2

REPORT INFORMATION
  Report Type: 
  Country: None (occurrence: None)
  Receive Date: 20070511
  Receipt Date: 20070430
  Transmission Date: 20071010
  Serious: Yes (Hospitalization, Other)
  Sender: FDA-Public Use
  Company Number: BR-ROCHE-495744

PATIENT
  Sex: Male
  Weight: 3.1 kg

DRUGS (1)
  1. ISOTRETINOIN [Suspect]
     Indication: ACNE

REACTIONS (5)
  - ASPIRATION BRONCHIAL [None]
  - CONVULSION [None]
  - DYSMORPHISM [None]
  - JAUNDICE [None]
  - POOR SUCKING REFLEX [None]
